FAERS Safety Report 4465995-9 (Version None)
Quarter: 2004Q3

REPORT INFORMATION
  Report Type: 
  Country: None (occurrence: None)
  Receive Date: 20040930
  Receipt Date: 20040920
  Transmission Date: 20050211
  Serious: No
  Sender: FDA-Public Use
  Company Number: 2004CG01828

PATIENT
  Sex: Female

DRUGS (1)
  1. ATACAND [Suspect]
     Dosage: 8 MG QD PO
     Route: 048
     Dates: start: 20040909, end: 20040916

REACTIONS (3)
  - MOUTH ULCERATION [None]
  - ODYNOPHAGIA [None]
  - PHARYNGEAL ULCERATION [None]
